FAERS Safety Report 23250112 (Version 1)
Quarter: 2023Q4

REPORT INFORMATION
  Report Type: Other
  Country: None (occurrence: US)
  Receive Date: 20231201
  Receipt Date: 20231201
  Transmission Date: 20240109
  Serious: Yes (Death, Hospitalization, Other)
  Sender: FDA-Public Use
  Company Number: US-Vista Pharmaceuticals Inc.-2148885

PATIENT
  Age: 44 Year
  Sex: Male

DRUGS (1)
  1. SULFAMETHOXAZOLE AND TRIMETHOPRIM [Suspect]
     Active Substance: SULFAMETHOXAZOLE\TRIMETHOPRIM
     Indication: Cellulitis
     Route: 065

REACTIONS (3)
  - Pulmonary toxicity [Fatal]
  - Respiratory failure [Fatal]
  - Product use in unapproved indication [Unknown]
